FAERS Safety Report 9321170 (Version 5)
Quarter: 2014Q1

REPORT INFORMATION
  Report Type: Spontaneous
  Country: JP (occurrence: JP)
  Receive Date: 20130531
  Receipt Date: 20140204
  Transmission Date: 20141002
  Serious: Yes (Hospitalization)
  Sender: FDA-Public Use
  Company Number: JP-009507513-1305JPN016322

PATIENT
  Age: 73 Year
  Sex: Male

DRUGS (5)
  1. JANUVIA TABLETS 100MG [Suspect]
     Dosage: 100 MG, QD
     Route: 048
     Dates: start: 20121023, end: 20130319
  2. EQUA [Suspect]
     Dosage: 50 MG, BID
     Route: 048
     Dates: start: 20130319, end: 20130419
  3. DIMELIN [Concomitant]
     Dosage: 500 MG, BID
     Route: 048
     Dates: end: 20130427
  4. MEVALOTIN [Concomitant]
     Dosage: 5 MG, QD
     Route: 048
     Dates: end: 20130427
  5. SEIBULE [Concomitant]
     Dosage: 50 MG, TID
     Route: 048
     Dates: start: 20120621

REACTIONS (5)
  - Nephrotic syndrome [Recovering/Resolving]
  - Rash [Not Recovered/Not Resolved]
  - Oedema peripheral [Recovering/Resolving]
  - Eczema [Recovering/Resolving]
  - Erythema [Recovering/Resolving]
